FAERS Safety Report 10330904 (Version 3)
Quarter: 2014Q3

REPORT INFORMATION
  Report Type: Spontaneous
  Country: CH (occurrence: CH)
  Receive Date: 20140722
  Receipt Date: 20140912
  Transmission Date: 20150326
  Serious: Yes (Other)
  Sender: FDA-Public Use
  Company Number: PHHY2014CH086857

PATIENT
  Age: 51 Year
  Sex: Male

DRUGS (10)
  1. SPORANOX [Concomitant]
     Active Substance: ITRACONAZOLE\SODIUM CHLORIDE
     Indication: PROPHYLAXIS
     Dosage: UNK UKN, UNK
  2. MONTELUKAST [Concomitant]
     Active Substance: MONTELUKAST SODIUM
     Dosage: UNK UKN, UNK
  3. PREDNISON [Concomitant]
     Active Substance: PREDNISONE
     Indication: COMPLICATIONS OF TRANSPLANTED LUNG
     Dosage: UNK UKN, UNK
  4. BACTRIM [Concomitant]
     Active Substance: SULFAMETHOXAZOLE\TRIMETHOPRIM
     Indication: PROPHYLAXIS
     Dosage: UNK UKN, UNK
  5. KALCIPOS-D [Concomitant]
     Active Substance: CALCIUM CARBONATE\CHOLECALCIFEROL
     Indication: VITAMIN SUPPLEMENTATION
     Dosage: UNK UKN, UNK
  6. CIPROXIN [Concomitant]
     Active Substance: CIPROFLOXACIN
     Indication: PROPHYLAXIS
     Dosage: UNK UKN, UNK
  7. INSULIN [Concomitant]
     Active Substance: INSULIN NOS
     Dosage: UNK UKN, UNK
  8. SANDIMMUN NEORAL [Suspect]
     Active Substance: CYCLOSPORINE
     Indication: COMPLICATIONS OF TRANSPLANTED LUNG
     Dosage: 70 MG, BID
     Route: 048
     Dates: start: 200205
  9. VALTREX [Concomitant]
     Active Substance: VALACYCLOVIR HYDROCHLORIDE
     Indication: PROPHYLAXIS
     Dosage: UNK UKN, UNK
  10. CELLCEPT [Concomitant]
     Active Substance: MYCOPHENOLATE MOFETIL\MYCOPHENOLATE MOFETIL HYDROCHLORIDE
     Indication: COMPLICATIONS OF TRANSPLANTED LUNG
     Dosage: UNK UKN, UNK

REACTIONS (10)
  - Influenza [Recovered/Resolved]
  - Superinfection bacterial [Unknown]
  - Lymphocyte count decreased [Unknown]
  - Lung infection [Not Recovered/Not Resolved]
  - C-reactive protein increased [Recovering/Resolving]
  - Dyspnoea [Not Recovered/Not Resolved]
  - Dysgeusia [Unknown]
  - Feeling abnormal [Unknown]
  - Disease progression [Recovering/Resolving]
  - Sleep apnoea syndrome [Unknown]

NARRATIVE: CASE EVENT DATE: 20140701
